FAERS Safety Report 4388800-8 (Version None)
Quarter: 2004Q2

REPORT INFORMATION
  Report Type: 
  Country: None (occurrence: None)
  Receive Date: 20040624
  Receipt Date: 20040615
  Transmission Date: 20050107
  Serious: Yes (Hospitalization, Other)
  Sender: FDA-Public Use
  Company Number: 2001-07-0089

PATIENT
  Age: 52 Year
  Sex: Male
  Weight: 87.5442 kg

DRUGS (6)
  1. PEG-INTRON [Suspect]
     Indication: HEPATITIS C
     Dosage: 1.5 MCG/KG/WK SUBCUTANEO
     Route: 058
     Dates: start: 19971028, end: 19980928
  2. SYNTHROID [Concomitant]
  3. SILYMARIN [Concomitant]
  4. METAMUCIL-2 [Concomitant]
  5. ADVIL [Concomitant]
  6. PSYLLIUM HYDROPHILIC MUCILLOID [Concomitant]

REACTIONS (10)
  - AUTOIMMUNE THYROIDITIS [None]
  - DYSPEPSIA [None]
  - ERYTHEMA [None]
  - GASTROINTESTINAL INFECTION [None]
  - HYPOTHYROIDISM [None]
  - INTERVERTEBRAL DISC PROTRUSION [None]
  - MEDIASTINUM NEOPLASM [None]
  - METASTASES TO LYMPH NODES [None]
  - METASTATIC NEOPLASM [None]
  - PAPILLARY THYROID CANCER [None]
